FAERS Safety Report 15639747 (Version 2)
Quarter: 2019Q1

REPORT INFORMATION
  Report Type: Spontaneous
  Country: TW (occurrence: TW)
  Receive Date: 20181120
  Receipt Date: 20190103
  Transmission Date: 20190417
  Serious: Yes (Hospitalization, Other)
  Sender: FDA-Public Use
  Company Number: TW-PFIZER INC-2018470615

PATIENT
  Age: 33 Year
  Sex: Female

DRUGS (5)
  1. XELJANZ [Suspect]
     Active Substance: TOFACITINIB CITRATE
     Indication: RHEUMATOID ARTHRITIS
     Dosage: 5 MG, BID
     Route: 048
     Dates: start: 20170406, end: 20181104
  2. METHOTREXATE. [Concomitant]
     Active Substance: METHOTREXATE
     Dosage: 5 TABLETS, QW
     Route: 048
     Dates: end: 20181104
  3. FOLIC ACID. [Concomitant]
     Active Substance: FOLIC ACID
     Dosage: 1 TABLET, QD
     Route: 048
     Dates: end: 20181104
  4. GOWELL [Concomitant]
     Active Substance: ALDIOXA\MAGNESIUM ALUMINUM SILICATE
     Dosage: 1 TABLET, Q12H
     Route: 048
     Dates: end: 20181104
  5. CELEBREX [Concomitant]
     Active Substance: CELECOXIB
     Dosage: 1 TABLET, Q12H
     Route: 048
     Dates: end: 20181104

REACTIONS (5)
  - Acoustic neuroma [Recovering/Resolving]
  - Intracranial mass [Recovering/Resolving]
  - Dizziness [Recovering/Resolving]
  - Tinnitus [Recovering/Resolving]
  - Hypoacusis [Recovering/Resolving]

NARRATIVE: CASE EVENT DATE: 2017
